FAERS Safety Report 9764484 (Version 2)
Quarter: 2014Q1

REPORT INFORMATION
  Report Type: Report from Study
  Country: BR (occurrence: BR)
  Receive Date: 20131217
  Receipt Date: 20140227
  Transmission Date: 20141002
  Serious: Yes (Hospitalization, Other)
  Sender: FDA-Public Use
  Company Number: BR-ROCHE-1318561

PATIENT
  Sex: Female
  Weight: 68 kg

DRUGS (9)
  1. ACTEMRA [Suspect]
     Indication: RHEUMATOID ARTHRITIS
     Dosage: LATEST INFUSION DATE: 04/DEC/2013.
     Route: 065
     Dates: start: 20100521
  2. FOLIC ACID [Concomitant]
  3. ACON [Concomitant]
  4. CRESTOR [Concomitant]
  5. AAS [Concomitant]
  6. ACETAMINOPHEN [Concomitant]
  7. FAMOTIDINE [Concomitant]
  8. CALCIUM CARBONATE [Concomitant]
  9. BETOPTIC S [Concomitant]

REACTIONS (4)
  - Uterine prolapse [Recovered/Resolved]
  - Hypertension [Not Recovered/Not Resolved]
  - Vision blurred [Not Recovered/Not Resolved]
  - Drug dose omission [Unknown]
